FAERS Safety Report 5976810-6 (Version None)
Quarter: 2008Q4

REPORT INFORMATION
  Report Type: 
  Country: None (occurrence: None)
  Receive Date: 20081201
  Receipt Date: 20081201
  Transmission Date: 20090506
  Serious: No
  Sender: FDA-Public Use
  Company Number: None

PATIENT

DRUGS (2)
  1. HEPARIN [Suspect]
     Indication: THROMBOSIS PROPHYLAXIS
     Dosage: 30,000 UNITS OPEN HEART CENTRAL LINE
     Dates: start: 20081124
  2. HEPARIN [Suspect]
     Indication: THROMBOSIS PROPHYLAXIS
     Dosage: 30,000 UNITS OPEN HEART CENTRAL LINE
     Dates: start: 20081126

REACTIONS (2)
  - COAGULATION TIME SHORTENED [None]
  - DRUG EFFECT DECREASED [None]
